FAERS Safety Report 8245481-0 (Version None)
Quarter: 2012Q1

REPORT INFORMATION
  Report Type: 
  Country: None (occurrence: None)
  Receive Date: 20120329
  Receipt Date: 20120319
  Transmission Date: 20120608
  Serious: Yes (Hospitalization)
  Sender: FDA-Public Use
  Company Number: VE-ROCHE-1053016

PATIENT
  Sex: Male

DRUGS (2)
  1. XOLAIR [Suspect]
     Indication: ASTHMA
     Route: 065
     Dates: start: 20100216
  2. ENALAPRIL [Concomitant]

REACTIONS (3)
  - NEOPLASM PROSTATE [None]
  - PAIN [None]
  - COUGH [None]
